FAERS Safety Report 13035868 (Version 4)
Quarter: 2017Q2

REPORT INFORMATION
  Report Type: Spontaneous
  Country: US (occurrence: US)
  Receive Date: 20161216
  Receipt Date: 20170517
  Transmission Date: 20170830
  Serious: No
  Sender: FDA-Public Use
  Company Number: US-PFIZER INC-2016579664

PATIENT
  Age: 55 Year
  Sex: Female
  Weight: 95 kg

DRUGS (19)
  1. ESTRADIOL. [Concomitant]
     Active Substance: ESTRADIOL
     Indication: HOT FLUSH
     Dosage: 2 MG, 1X/DAY
     Dates: start: 2014
  2. LEVOTHYROXINE SODIUM. [Concomitant]
     Active Substance: LEVOTHYROXINE SODIUM
     Indication: THYROID DISORDER
     Dosage: 125 UG, 1X/DAY
     Dates: start: 1999
  3. TEGRETOL [Concomitant]
     Active Substance: CARBAMAZEPINE
     Dosage: 400 MG, 4X/DAY
     Route: 048
     Dates: start: 201205
  4. SYNTHROID [Concomitant]
     Active Substance: LEVOTHYROXINE SODIUM
     Dosage: UNK
  5. PHILLIPS COLON HEALTH [Concomitant]
     Indication: FUNCTIONAL GASTROINTESTINAL DISORDER
     Dosage: UNK, 1X/DAY
     Dates: start: 2014
  6. LYRICA [Suspect]
     Active Substance: PREGABALIN
     Dosage: 75 MG, UNK
     Dates: start: 201611
  7. LYRICA [Suspect]
     Active Substance: PREGABALIN
     Dosage: 50 MG, 1X/DAY
     Dates: start: 2015
  8. LYRICA [Suspect]
     Active Substance: PREGABALIN
     Dosage: 150 MG, 2X/DAY
     Route: 048
     Dates: start: 20150402
  9. CARBAMAZEPINE. [Concomitant]
     Active Substance: CARBAMAZEPINE
     Indication: TRIGEMINAL NEURALGIA
     Dosage: 300 MG, 4X/DAY,200MG, ONE AND A HALF TABLETS FOUR TIMES A DAY
     Dates: start: 2013
  10. VITAMIN D [Concomitant]
     Active Substance: CHOLECALCIFEROL
     Dosage: 1000 IU, 1X/DAY
     Dates: start: 2014
  11. LYRICA [Suspect]
     Active Substance: PREGABALIN
     Dosage: 50 MG, EVERY 12 HOURS
  12. LYRICA [Suspect]
     Active Substance: PREGABALIN
     Dosage: 75 MG, 1X/DAY
     Dates: start: 2017
  13. MELOXICAM. [Concomitant]
     Active Substance: MELOXICAM
     Indication: MENISCUS INJURY
     Dosage: 15 MG, 1X/DAY
     Dates: start: 2016
  14. LIPITOR [Concomitant]
     Active Substance: ATORVASTATIN CALCIUM
     Dosage: UNK
  15. PRILOSEC [Concomitant]
     Active Substance: OMEPRAZOLE MAGNESIUM
     Indication: COUGH
     Dosage: 20 MG, 1X/DAY
     Dates: start: 2014
  16. TEGRETOL [Concomitant]
     Active Substance: CARBAMAZEPINE
     Indication: TRIGEMINAL NEURALGIA
     Dosage: UNK UNK, DAILY [400/300/300/400 MG DAILY]
     Dates: start: 201205
  17. LYRICA [Suspect]
     Active Substance: PREGABALIN
     Indication: TRIGEMINAL NEURALGIA
     Dosage: 100 MG, 2X/DAY
  18. LYRICA [Suspect]
     Active Substance: PREGABALIN
     Dosage: 50 MG, 1X/DAY
  19. PROVERA [Concomitant]
     Active Substance: MEDROXYPROGESTERONE ACETATE
     Indication: HOT FLUSH
     Dosage: 10 MG, 1X/DAY
     Dates: start: 2014

REACTIONS (5)
  - Condition aggravated [Unknown]
  - Pain [Unknown]
  - Feeling abnormal [Recovered/Resolved]
  - Jaw disorder [Unknown]
  - Impaired driving ability [Unknown]
